FAERS Safety Report 11419321 (Version 1)
Quarter: 2015Q3

REPORT INFORMATION
  Report Type: Spontaneous
  Country: GB (occurrence: GB)
  Receive Date: 20150826
  Receipt Date: 20150826
  Transmission Date: 20151125
  Serious: Yes (Disabling, Other)
  Sender: FDA-Public Use
  Company Number: GB-SUN PHARMACEUTICAL INDUSTRIES LTD-2015RR-102078

PATIENT

DRUGS (4)
  1. SERTRALINE [Suspect]
     Active Substance: SERTRALINE HYDROCHLORIDE
     Dosage: 150 MG
     Route: 048
  2. SERTRALINE [Suspect]
     Active Substance: SERTRALINE HYDROCHLORIDE
     Indication: PRODUCT USED FOR UNKNOWN INDICATION
     Dosage: 50 MG
     Route: 048
  3. SERTRALINE [Suspect]
     Active Substance: SERTRALINE HYDROCHLORIDE
     Indication: PRODUCT USED FOR UNKNOWN INDICATION
     Dosage: 200 MG
     Route: 048
  4. SERTRALINE [Suspect]
     Active Substance: SERTRALINE HYDROCHLORIDE
     Dosage: 100 MG
     Route: 048

REACTIONS (14)
  - Apathy [Recovered/Resolved with Sequelae]
  - Hypersomnia [Recovered/Resolved]
  - Intentional self-injury [Recovered/Resolved with Sequelae]
  - Suicidal behaviour [Recovered/Resolved]
  - Flat affect [Not Recovered/Not Resolved]
  - Anorgasmia [Not Recovered/Not Resolved]
  - Suicidal ideation [Recovered/Resolved with Sequelae]
  - Antisocial behaviour [Recovered/Resolved with Sequelae]
  - Substance use [Not Recovered/Not Resolved]
  - Alcohol abuse [Recovered/Resolved]
  - Somnolence [Recovered/Resolved]
  - Anger [Recovered/Resolved]
  - Dyskinesia [Recovered/Resolved with Sequelae]
  - Withdrawal syndrome [Unknown]
